FAERS Safety Report 4805424-6 (Version None)
Quarter: 2005Q4

REPORT INFORMATION
  Report Type: 
  Country: None (occurrence: None)
  Receive Date: 20051018
  Receipt Date: 20051005
  Transmission Date: 20060501
  Serious: Yes (Life-Threatening)
  Sender: FDA-Public Use
  Company Number: 2005139037

PATIENT
  Age: 36 Year
  Sex: Female

DRUGS (2)
  1. DEPO-PROVERA [Suspect]
     Indication: CONTRACEPTION
     Dosage: 150 MG (150 MG, SINGLE INJECTION), INTRAMUSCULAR
     Route: 030
     Dates: start: 20050923, end: 20050923
  2. LEVONORGESTREL AND ETHINYL ESTRADIOL [Concomitant]

REACTIONS (5)
  - FLUSHING [None]
  - NASAL DISCOMFORT [None]
  - ORAL PRURITUS [None]
  - PRURITUS GENERALISED [None]
  - SNEEZING [None]
